FAERS Safety Report 20696999 (Version 1)
Quarter: 2022Q2

REPORT INFORMATION
  Report Type: Spontaneous
  Country: US (occurrence: None)
  Receive Date: 20220408
  Receipt Date: 20220408
  Transmission Date: 20220720
  Serious: No
  Sender: FDA-Public Use
  Company Number: None

PATIENT
  Sex: Male

DRUGS (1)
  1. DROXIDOPA [Suspect]
     Active Substance: DROXIDOPA
     Indication: Autonomic neuropathy
     Dosage: FOR TAKE 1 CAPSULE BY MOUTH AT 9AM AND 2PM FOR 2 DAYS, THEN TAKE 2 CAPSULES TWICE DAILY FOR 2 DAYS,
     Route: 048

REACTIONS (1)
  - Drug ineffective [None]
